FAERS Safety Report 6299389-0 (Version None)
Quarter: 2009Q3

REPORT INFORMATION
  Report Type: 
  Country: None (occurrence: None)
  Receive Date: 20090806
  Receipt Date: 20090803
  Transmission Date: 20100115
  Serious: Yes (Death, Hospitalization, Other)
  Sender: FDA-Public Use
  Company Number: US-JNJFOC-20090800924

PATIENT
  Age: 40 Year
  Sex: Male

DRUGS (2)
  1. DURAGESIC-100 [Suspect]
     Indication: ANALGESIA
     Route: 048
  2. ULTRAM [Suspect]
     Indication: DRUG USE FOR UNKNOWN INDICATION
     Route: 065

REACTIONS (6)
  - ALCOHOL WITHDRAWAL SYNDROME [None]
  - DEATH [None]
  - INTENTIONAL DRUG MISUSE [None]
  - OVERDOSE [None]
  - PANCREATITIS [None]
  - SUICIDAL IDEATION [None]
